FAERS Safety Report 23957293 (Version 1)
Quarter: 2024Q2

REPORT INFORMATION
  Report Type: Spontaneous
  Country: US (occurrence: US)
  Receive Date: 20240610
  Receipt Date: 20240610
  Transmission Date: 20240715
  Serious: Yes (Hospitalization)
  Sender: FDA-Public Use
  Company Number: US-SA-SAC20240604000189

PATIENT
  Age: 52 Year
  Sex: Female

DRUGS (1)
  1. REZUROCK [Suspect]
     Active Substance: BELUMOSUDIL
     Indication: Acute myeloid leukaemia
     Dosage: 200MG; QD
     Route: 048
     Dates: start: 20240318

REACTIONS (3)
  - Influenza [Not Recovered/Not Resolved]
  - Nasal congestion [Not Recovered/Not Resolved]
  - Product use in unapproved indication [Unknown]

NARRATIVE: CASE EVENT DATE: 20240318
